FAERS Safety Report 25158839 (Version 1)
Quarter: 2025Q2

REPORT INFORMATION
  Report Type: Spontaneous
  Country: PL (occurrence: PL)
  Receive Date: 20250404
  Receipt Date: 20250404
  Transmission Date: 20250716
  Serious: Yes (Other)
  Sender: EMD SERONO INC
  Company Number: None

PATIENT
  Age: 45 Year
  Sex: Female
  Weight: 100 kg

DRUGS (1)
  1. EUTHYROX [Suspect]
     Active Substance: LEVOTHYROXINE SODIUM
     Indication: Thyroidectomy
     Dosage: THERAPY ONGOING
     Dates: start: 2002

REACTIONS (12)
  - Peripheral swelling [Unknown]
  - Dyspnoea [Unknown]
  - Loss of consciousness [Unknown]
  - Blood thyroid stimulating hormone increased [Unknown]
  - Thyroiditis [Unknown]
  - Peripheral coldness [Unknown]
  - Blood pressure decreased [Unknown]
  - Feeling jittery [Unknown]
  - Polymenorrhoea [Unknown]
  - Erythema [Unknown]
  - Headache [Unknown]
  - Diarrhoea [Unknown]
